FAERS Safety Report 5941104-1 (Version None)
Quarter: 2008Q4

REPORT INFORMATION
  Report Type: 
  Country: None (occurrence: None)
  Receive Date: 20081104
  Receipt Date: 20081022
  Transmission Date: 20090506
  Serious: Yes (Hospitalization)
  Sender: FDA-Public Use
  Company Number: AT-ELI_LILLY_AND_COMPANY-AT200810005479

PATIENT
  Age: 27 Year
  Sex: Male
  Weight: 120.4 kg

DRUGS (13)
  1. ZYPREXA [Suspect]
     Dosage: 20 MG, DAILY (1/D)
     Dates: end: 20080601
  2. ZYPREXA [Suspect]
     Dosage: 10 MG, DAILY (1/D)
     Dates: start: 20080617, end: 20080617
  3. ZYPREXA [Suspect]
     Dosage: 30 MG, DAILY (1/D)
     Dates: start: 20080618, end: 20080101
  4. ZYPREXA [Suspect]
     Dosage: 25 MG, DAILY (1/D)
     Dates: start: 20080721
  5. ABILIFY [Concomitant]
     Dosage: 30 MG, DAILY (1/D)
     Dates: end: 20080601
  6. CO-DILATREND [Concomitant]
     Dosage: 25 MG, DAILY (1/D)
     Dates: end: 20080618
  7. CO-DILATREND [Concomitant]
     Dosage: 12.5 MG, DAILY (1/D)
     Dates: start: 20080619
  8. HALDOL [Concomitant]
     Dosage: 10 MG, DAILY (1/D)
     Dates: start: 20080617, end: 20080618
  9. HALDOL [Concomitant]
     Dosage: 5 MG, DAILY (1/D)
     Dates: start: 20080619, end: 20080619
  10. TEMESTA [Concomitant]
     Dosage: 3 MG, DAILY (1/D)
     Dates: start: 20080617, end: 20080617
  11. TEMESTA [Concomitant]
     Dosage: 3 MG, DAILY (1/D)
     Dates: start: 20080618, end: 20080618
  12. TEMESTA [Concomitant]
     Dosage: 7.5 MG, DAILY (1/D)
     Dates: start: 20080618
  13. RISPERIDONE [Concomitant]

REACTIONS (4)
  - ACUTE PSYCHOSIS [None]
  - DRUG INTERACTION [None]
  - OVERDOSE [None]
  - RHABDOMYOLYSIS [None]
